FAERS Safety Report 24837606 (Version 1)
Quarter: 2025Q1

REPORT INFORMATION
  Report Type: Spontaneous
  Country: US (occurrence: US)
  Receive Date: 20250113
  Receipt Date: 20250113
  Transmission Date: 20250409
  Serious: No
  Sender: CALLIDITAS THERAPEUTICS AB
  Company Number: US-Calliditas-2025CAL00021

PATIENT
  Age: 35 Year
  Sex: Female

DRUGS (6)
  1. TARPEYO [Suspect]
     Active Substance: BUDESONIDE
     Indication: IgA nephropathy
     Route: 048
     Dates: start: 20241114
  2. VITAMIN K [Concomitant]
     Active Substance: PHYTONADIONE
  3. VITAMIN D3 [Concomitant]
     Active Substance: CHOLECALCIFEROL
  4. CARVEDILOL [Concomitant]
     Active Substance: CARVEDILOL
  5. IRON [Concomitant]
     Active Substance: IRON
  6. IRBESARTAN [Concomitant]
     Active Substance: IRBESARTAN

REACTIONS (3)
  - Rash [Recovering/Resolving]
  - Swelling [Recovering/Resolving]
  - Pharyngeal swelling [Unknown]
